FAERS Safety Report 5101032-0 (Version None)
Quarter: 2006Q3

REPORT INFORMATION
  Report Type: 
  Country: None (occurrence: None)
  Receive Date: 20060911
  Receipt Date: 20060830
  Transmission Date: 20061208
  Serious: Yes (Other)
  Sender: FDA-Public Use
  Company Number: US-JNJFOC-20060105228

PATIENT
  Sex: Female
  Weight: 69.85 kg

DRUGS (4)
  1. ORTHO EVRA [Suspect]
     Indication: CONTRACEPTION
     Route: 062
  2. ORTHO TRI-CYCLEN [Suspect]
     Indication: CONTRACEPTION
  3. SEASONALE [Suspect]
     Indication: CONTRACEPTION
  4. NEURONTIN [Concomitant]

REACTIONS (11)
  - ABORTION THREATENED [None]
  - ANXIETY [None]
  - DEPRESSION [None]
  - ERYTHEMA NODOSUM [None]
  - FALL [None]
  - HAEMATOMA [None]
  - OVARIAN CYST [None]
  - PHARYNGITIS STREPTOCOCCAL [None]
  - RADICULOPATHY [None]
  - TACHYCARDIA [None]
  - THROMBOSIS [None]
